FAERS Safety Report 10089421 (Version 1)
Quarter: 2014Q2

REPORT INFORMATION
  Report Type: Spontaneous
  Country: CN (occurrence: CN)
  Receive Date: 20140421
  Receipt Date: 20140421
  Transmission Date: 20141212
  Serious: Yes (Other)
  Sender: FDA-Public Use
  Company Number: CN-SA-2014SA047423

PATIENT
  Age: 54 Year
  Sex: Male

DRUGS (1)
  1. CLOPIDOGREL BISULFATE [Suspect]
     Indication: DISCOMFORT
     Route: 048
     Dates: start: 20130304, end: 20130306

REACTIONS (1)
  - Respiratory distress [Recovering/Resolving]
